FAERS Safety Report 9938815 (Version 2)
Quarter: 2014Q2

REPORT INFORMATION
  Report Type: Spontaneous
  Country: US (occurrence: US)
  Receive Date: 20140303
  Receipt Date: 20140408
  Transmission Date: 20141212
  Serious: Yes (Hospitalization, Other)
  Sender: FDA-Public Use
  Company Number: US-BAYER-2014-031398

PATIENT
  Age: 43 Year
  Sex: Female
  Weight: 96.15 kg

DRUGS (2)
  1. MIRENA [Suspect]
     Indication: CONTRACEPTION
     Dosage: 20 MCG/24HR, CONT
     Route: 015
     Dates: start: 20101108, end: 20130109
  2. MIRENA [Suspect]
     Indication: CONTRACEPTION
     Dosage: 20 MCG/24HR, CONT
     Route: 015
     Dates: start: 2006, end: 2010

REACTIONS (11)
  - Embedded device [None]
  - Post procedural haemorrhage [None]
  - Wound dehiscence [None]
  - Necrosis [None]
  - Wound infection [None]
  - Haematoma [None]
  - Seroma [None]
  - Injury [None]
  - Abdominal pain [None]
  - Emotional distress [None]
  - Medical device discomfort [None]
